FAERS Safety Report 18866867 (Version 1)
Quarter: 2021Q1

REPORT INFORMATION
  Report Type: Report from Study
  Country: None (occurrence: BR)
  Receive Date: 20210208
  Receipt Date: 20210208
  Transmission Date: 20210420
  Serious: Yes (Hospitalization, Disabling)
  Sender: FDA-Public Use
  Company Number: BR-ABBVIE-21K-020-3757929-00

PATIENT
  Age: 65 Year
  Sex: Female
  Weight: 75 kg

DRUGS (4)
  1. HUMIRA [Suspect]
     Active Substance: ADALIMUMAB
     Route: 058
     Dates: end: 202101
  2. QUETIAPINE. [Concomitant]
     Active Substance: QUETIAPINE
     Indication: PRODUCT USED FOR UNKNOWN INDICATION
  3. HUMIRA [Suspect]
     Active Substance: ADALIMUMAB
     Route: 058
     Dates: start: 202101
  4. HUMIRA [Suspect]
     Active Substance: ADALIMUMAB
     Indication: RHEUMATOID ARTHRITIS
     Route: 058
     Dates: start: 20170701, end: 2019

REACTIONS (23)
  - Heart rate abnormal [Unknown]
  - Gastritis [Unknown]
  - Gastrooesophageal reflux disease [Recovering/Resolving]
  - Nausea [Recovering/Resolving]
  - Gastric mucosa erythema [Unknown]
  - Oxygen saturation decreased [Unknown]
  - Malaise [Unknown]
  - Gastrointestinal oedema [Unknown]
  - Anxiety [Unknown]
  - Suspected COVID-19 [Unknown]
  - Pneumonia bacterial [Recovering/Resolving]
  - Hypophagia [Unknown]
  - Abdominal distension [Not Recovered/Not Resolved]
  - Oxygen saturation abnormal [Unknown]
  - Mobility decreased [Unknown]
  - Dyspepsia [Unknown]
  - Pneumonia [Recovered/Resolved]
  - Vomiting [Recovering/Resolving]
  - Asthenia [Unknown]
  - Food refusal [Unknown]
  - Hiatus hernia [Unknown]
  - Abdominal pain upper [Recovering/Resolving]
  - Unevaluable event [Unknown]

NARRATIVE: CASE EVENT DATE: 2019
